FAERS Safety Report 5273332-5 (Version None)
Quarter: 2007Q1

REPORT INFORMATION
  Report Type: 
  Country: None (occurrence: None)
  Receive Date: 20070319
  Receipt Date: 20070302
  Transmission Date: 20070707
  Serious: Yes (Death)
  Sender: FDA-Public Use
  Company Number: 15844

PATIENT
  Age: 15 Year
  Sex: Male

DRUGS (10)
  1. METHOTREXATE [Suspect]
  2. VINCRISTINE [Suspect]
  3. DOXORUBICIN HCL [Suspect]
     Indication: NON-HODGKIN'S LYMPHOMA
  4. DAUNORUBICIN HCL [Suspect]
     Indication: NON-HODGKIN'S LYMPHOMA
  5. CYTARABINE [Suspect]
     Indication: NON-HODGKIN'S LYMPHOMA
  6. CORTISON. MFR:  NOT SPECIFIED [Suspect]
     Indication: NON-HODGKIN'S LYMPHOMA
  7. ASPARAGINASE [Suspect]
     Indication: NON-HODGKIN'S LYMPHOMA
  8. CYCLOPHOSPHAMIDE [Suspect]
     Indication: NON-HODGKIN'S LYMPHOMA
  9. MERCAPTOPURINE [Suspect]
     Indication: NON-HODGKIN'S LYMPHOMA
  10. TIOGUANINE [Suspect]
     Indication: NON-HODGKIN'S LYMPHOMA

REACTIONS (2)
  - GLIOMA [None]
  - TREATMENT RELATED SECONDARY MALIGNANCY [None]
